FAERS Safety Report 7724744-9 (Version None)
Quarter: 2011Q3

REPORT INFORMATION
  Report Type: 
  Country: None (occurrence: None)
  Receive Date: 20110901
  Receipt Date: 20110825
  Transmission Date: 20111222
  Serious: Yes (Other)
  Sender: FDA-Public Use
  Company Number: US-PFIZER INC-2011140999

PATIENT
  Sex: Female
  Weight: 68.027 kg

DRUGS (8)
  1. CHANTIX [Suspect]
     Indication: SMOKING CESSATION THERAPY
     Dosage: UNK
     Route: 048
     Dates: start: 20110401
  2. TRAMADOL [Concomitant]
     Indication: PAIN
     Dosage: UNK
  3. VALIUM [Concomitant]
     Dosage: 5 MG, AS NEEDED
     Route: 048
  4. TRAMADOL [Concomitant]
     Indication: FIBROMYALGIA
  5. PERCOCET [Concomitant]
     Indication: PAIN
     Dosage: UNK
     Route: 048
     Dates: start: 20110411, end: 20110101
  6. OXYCODONE [Concomitant]
     Indication: PAIN
     Dosage: UNK
  7. ACETYLSALICYLIC ACID [Concomitant]
     Indication: HAEMOCHROMATOSIS
     Dosage: 81 MG, DAILY
     Route: 048
  8. METOCLOPRAMIDE [Concomitant]
     Indication: IRRITABLE BOWEL SYNDROME
     Dosage: 10 MG, 4X/DAY
     Route: 048

REACTIONS (5)
  - DIZZINESS [None]
  - VOMITING [None]
  - BLOOD SODIUM DECREASED [None]
  - NAUSEA [None]
  - BLOOD POTASSIUM DECREASED [None]
